FAERS Safety Report 9348766 (Version 2)
Quarter: 2013Q3

REPORT INFORMATION
  Report Type: Spontaneous
  Country: FR (occurrence: FR)
  Receive Date: 20130614
  Receipt Date: 20130715
  Transmission Date: 20140515
  Serious: Yes (Other)
  Sender: FDA-Public Use
  Company Number: FR-PFIZER INC-2013177304

PATIENT
  Age: 69 Year
  Sex: Female
  Weight: 78 kg

DRUGS (2)
  1. EFFEXOR LP [Suspect]
     Indication: DEPRESSION
     Dosage: 75 MG, 1X/DAY
     Dates: start: 20110202
  2. ATARAX [Concomitant]
     Indication: ANXIETY
     Dosage: 50 UNK, UNK
     Route: 048
     Dates: start: 20111102

REACTIONS (3)
  - Wheezing [Unknown]
  - Dyspnoea [Not Recovered/Not Resolved]
  - Hot flush [Not Recovered/Not Resolved]
